FAERS Safety Report 17824181 (Version 1)
Quarter: 2020Q2

REPORT INFORMATION
  Report Type: Spontaneous
  Country: US (occurrence: US)
  Receive Date: 20200525
  Receipt Date: 20200525
  Transmission Date: 20200714
  Serious: No
  Sender: FDA-Public Use
  Company Number: None

PATIENT
  Age: 70 Year
  Sex: Female

DRUGS (2)
  1. PIQRAY [Suspect]
     Active Substance: ALPELISIB
     Route: 048
     Dates: start: 201910, end: 202005
  2. FASLODEX [Concomitant]
     Active Substance: FULVESTRANT

REACTIONS (4)
  - Arthralgia [None]
  - Dehydration [None]
  - Muscle strain [None]
  - Blood glucose increased [None]

NARRATIVE: CASE EVENT DATE: 20200429
